FAERS Safety Report 4449913-5 (Version None)
Quarter: 2004Q3

REPORT INFORMATION
  Report Type: 
  Country: None (occurrence: None)
  Receive Date: 20040915
  Receipt Date: 20040817
  Transmission Date: 20050211
  Serious: Yes (Hospitalization, Disabling, Other)
  Sender: FDA-Public Use
  Company Number: US013094

PATIENT
  Age: 53 Year
  Sex: Female

DRUGS (4)
  1. LITHIUM [Suspect]
     Indication: DRUG USE FOR UNKNOWN INDICATION
     Dosage: 1500MG PER DAY
     Route: 048
     Dates: start: 19940101
  2. PROVIGIL [Suspect]
     Indication: DRUG USE FOR UNKNOWN INDICATION
     Dosage: 50MG PER DAY
     Route: 048
     Dates: start: 20040312, end: 20040313
  3. LAMICTAL [Concomitant]
     Dates: start: 20031001
  4. RISPERDAL [Concomitant]
     Dates: start: 20031001

REACTIONS (14)
  - ACTIVITIES OF DAILY LIVING IMPAIRED [None]
  - ANXIETY [None]
  - BIPOLAR I DISORDER [None]
  - DEPRESSION [None]
  - DISSOCIATION [None]
  - DISTURBANCE IN ATTENTION [None]
  - DRUG LEVEL INCREASED [None]
  - ENERGY INCREASED [None]
  - HYPOMANIA [None]
  - IMPAIRED DRIVING ABILITY [None]
  - MANIA [None]
  - OBSESSIVE THOUGHTS [None]
  - PSYCHOTIC DISORDER [None]
  - SOMNOLENCE [None]
